FAERS Safety Report 5751558-1 (Version None)
Quarter: 2008Q2

REPORT INFORMATION
  Report Type: 
  Country: None (occurrence: None)
  Receive Date: 20080528
  Receipt Date: 20080519
  Transmission Date: 20081010
  Serious: Yes (Other)
  Sender: FDA-Public Use
  Company Number: PHNU2008DE01622

PATIENT
  Sex: Female
  Weight: 69.8 kg

DRUGS (4)
  1. RASILEZ [Suspect]
     Dosage: 300 MG/DAY
     Route: 048
     Dates: start: 20080301
  2. PREDNISOLONE [Concomitant]
     Dosage: 5 UNK/DAY FOR YEARS
     Route: 048
  3. METAMIZOLE SODIUM [Concomitant]
     Dosage: 1 DF, BID FOR YEARS
     Route: 048
  4. ACETYLSALICYLIC ACID SRT [Concomitant]
     Dosage: 1 DF, QD FOR YEARS
     Route: 048

REACTIONS (6)
  - CEREBROVASCULAR ACCIDENT [None]
  - DYSAESTHESIA [None]
  - FEELING ABNORMAL [None]
  - GAIT DISTURBANCE [None]
  - MUSCULAR WEAKNESS [None]
  - SPEECH DISORDER [None]
